FAERS Safety Report 24061713 (Version 2)
Quarter: 2024Q3

REPORT INFORMATION
  Report Type: Spontaneous
  Country: US (occurrence: US)
  Receive Date: 20240708
  Receipt Date: 20240829
  Transmission Date: 20241017
  Serious: Yes (Death, Other)
  Sender: PFIZER
  Company Number: US-SEATTLE GENETICS-2024SGN03719

PATIENT
  Age: 71 Year
  Sex: Female

DRUGS (3)
  1. TUKYSA [Suspect]
     Active Substance: TUCATINIB
     Indication: Breast cancer female
     Dosage: 150 MG
  2. TUKYSA [Suspect]
     Active Substance: TUCATINIB
     Dosage: 150 MG
  3. TUKYSA [Suspect]
     Active Substance: TUCATINIB
     Dosage: TAKE TWO TABLET BY MOUTH EVERY 12 HOURS WITH FOOD
     Route: 048

REACTIONS (3)
  - Death [Fatal]
  - Nausea [Unknown]
  - Diarrhoea [Unknown]

NARRATIVE: CASE EVENT DATE: 20240418
